FAERS Safety Report 7056387-7 (Version None)
Quarter: 2010Q4

REPORT INFORMATION
  Report Type: 
  Country: None (occurrence: None)
  Receive Date: 20101021
  Receipt Date: 20101004
  Transmission Date: 20110411
  Serious: Yes (Other)
  Sender: FDA-Public Use
  Company Number: PHEH2009US05234

PATIENT
  Sex: Female

DRUGS (5)
  1. RECLAST [Suspect]
     Indication: OSTEOPOROSIS
     Dosage: 5 MG
     Route: 042
     Dates: start: 20080611
  2. RECLAST [Suspect]
     Dosage: 5 MG
     Route: 042
  3. RECLAST [Suspect]
     Dosage: UNK
     Dates: start: 20100808
  4. FOSAMAX [Suspect]
  5. COUMADIN [Concomitant]

REACTIONS (6)
  - DRUG INEFFECTIVE [None]
  - MASS [None]
  - ORAL PAIN [None]
  - OSTEOPOROSIS [None]
  - PAIN IN JAW [None]
  - TOOTH EXTRACTION [None]
